FAERS Safety Report 18300230 (Version 6)
Quarter: 2021Q4

REPORT INFORMATION
  Report Type: Report from Study
  Country: FR (occurrence: FR)
  Receive Date: 20200923
  Receipt Date: 20211108
  Transmission Date: 20220303
  Serious: Yes (Hospitalization)
  Sender: FDA-Public Use
  Company Number: None

PATIENT
  Age: 82 Year
  Sex: Female
  Weight: 64 kg

DRUGS (18)
  1. NAPORAFENIB [Suspect]
     Active Substance: NAPORAFENIB
     Indication: Malignant melanoma
     Dosage: 100 MG, BID
     Route: 048
     Dates: start: 20200205, end: 20200912
  2. TRAMETINIB [Suspect]
     Active Substance: TRAMETINIB
     Indication: Malignant melanoma
     Dosage: 100 MG, QD
     Route: 048
     Dates: start: 20200205, end: 20200912
  3. METOCLOPRAMIDE [Concomitant]
     Active Substance: METOCLOPRAMIDE
     Indication: Nausea
     Dosage: 10 MG, TID
     Route: 065
     Dates: start: 20200903
  4. SECTRAL [Concomitant]
     Active Substance: ACEBUTOLOL HYDROCHLORIDE
     Indication: Hypertension
     Dosage: UNK
     Route: 065
     Dates: start: 1976
  5. SECTRAL [Concomitant]
     Active Substance: ACEBUTOLOL HYDROCHLORIDE
     Dosage: 0.5 DF (CP), QD
     Route: 065
     Dates: start: 20200212
  6. GAVISCON [Concomitant]
     Active Substance: ALUMINUM HYDROXIDE\MAGNESIUM CARBONATE
     Indication: Gastric disorder
     Dosage: 1 UNK, QD
     Route: 065
     Dates: start: 20200819
  7. FUROSEMIDE [Concomitant]
     Active Substance: FUROSEMIDE
     Indication: Hypertension
     Dosage: UNK
     Route: 065
     Dates: end: 20200722
  8. FUROSEMIDE [Concomitant]
     Active Substance: FUROSEMIDE
     Indication: Oedema peripheral
     Dosage: UNK
     Route: 065
     Dates: start: 20200722, end: 20200814
  9. CHOLECALCIFEROL [Concomitant]
     Active Substance: CHOLECALCIFEROL
     Indication: Vitamin D deficiency
     Dosage: UNK
     Route: 065
  10. METHOTREXATE [Concomitant]
     Active Substance: METHOTREXATE
     Indication: Psoriasis
     Dosage: UNK
     Route: 065
     Dates: start: 2008
  11. FOLIC ACID [Concomitant]
     Active Substance: FOLIC ACID
     Indication: Psoriasis
     Dosage: UNK
     Route: 065
     Dates: start: 2008
  12. PREDNISONE [Concomitant]
     Active Substance: PREDNISONE
     Indication: Psoriasis
     Dosage: UNK
     Route: 065
     Dates: start: 2018
  13. DIPROSONE [Concomitant]
     Active Substance: BETAMETHASONE DIPROPIONATE
     Indication: Rash
     Dosage: UNK
     Route: 065
     Dates: start: 20200226, end: 20201015
  14. DIPROSONE [Concomitant]
     Active Substance: BETAMETHASONE DIPROPIONATE
     Indication: Limb injury
     Dosage: UNK
     Route: 065
     Dates: start: 20200304, end: 20201015
  15. DOXICYCLINE [Concomitant]
     Indication: Rash
     Dosage: UNK
     Route: 065
     Dates: start: 20200311, end: 20201015
  16. DOLIPRANE [Concomitant]
     Active Substance: ACETAMINOPHEN
     Indication: COVID-19
     Dosage: UNK
     Route: 065
     Dates: start: 20200410
  17. ALDACTONE [Concomitant]
     Active Substance: SPIRONOLACTONE
     Indication: Dyspnoea
     Dosage: UNK
     Route: 065
     Dates: start: 20200804, end: 20200819
  18. H.E.C. [Concomitant]
     Indication: Epistaxis
     Dosage: UNK
     Route: 065
     Dates: start: 20200805, end: 20200819

REACTIONS (1)
  - Anaemia [Not Recovered/Not Resolved]

NARRATIVE: CASE EVENT DATE: 20200910
